FAERS Safety Report 19194313 (Version 2)
Quarter: 2021Q2

REPORT INFORMATION
  Report Type: Report from Study
  Country: CA (occurrence: CA)
  Receive Date: 20210429
  Receipt Date: 20210624
  Transmission Date: 20210717
  Serious: Yes (Other)
  Sender: FDA-Public Use
  Company Number: PHHY2015CA064977

PATIENT
  Age: 69 Year
  Sex: Male

DRUGS (3)
  1. SANDOSTATIN LAR DEPOT [Suspect]
     Active Substance: OCTREOTIDE ACETATE
  2. SANDOSTATIN LAR DEPOT [Suspect]
     Active Substance: OCTREOTIDE ACETATE
     Dosage: 40 MG, Q4W (EVERY 4 WEEKS)
     Route: 030
     Dates: start: 20150527
  3. SANDOSTATIN LAR DEPOT [Suspect]
     Active Substance: OCTREOTIDE ACETATE
     Indication: CARCINOID TUMOUR
     Dosage: 30 MG, Q4W (EVERY 4 WEEKS)
     Route: 030
     Dates: start: 20050316

REACTIONS (10)
  - Blood pressure systolic increased [Unknown]
  - White coat hypertension [Unknown]
  - Recurrent cancer [Unknown]
  - Blood pressure increased [Unknown]
  - Heart rate decreased [Unknown]
  - Groin pain [Unknown]
  - Bronchitis [Recovering/Resolving]
  - Stress [Unknown]
  - Inguinal hernia [Unknown]
  - Swelling [Unknown]

NARRATIVE: CASE EVENT DATE: 2018
